FAERS Safety Report 23875591 (Version 1)
Quarter: 2024Q2

REPORT INFORMATION
  Report Type: Spontaneous
  Country: CA (occurrence: CA)
  Receive Date: 20240520
  Receipt Date: 20240520
  Transmission Date: 20240716
  Serious: Yes (Hospitalization, Other)
  Sender: FDA-Public Use
  Company Number: CA-OTSUKA-2024_013881

PATIENT
  Age: 42 Year
  Sex: Male

DRUGS (2)
  1. ABILIFY [Suspect]
     Active Substance: ARIPIPRAZOLE
     Indication: Product used for unknown indication
     Dosage: 6 MG
     Route: 065
  2. PALIPERIDONE PALMITATE [Suspect]
     Active Substance: PALIPERIDONE PALMITATE
     Indication: Product used for unknown indication
     Dosage: 150 MG
     Route: 030

REACTIONS (10)
  - Autism spectrum disorder [Unknown]
  - Communication disorder [Unknown]
  - Dysphonia [Unknown]
  - Infertility [Unknown]
  - Language disorder [Unknown]
  - Male sexual dysfunction [Unknown]
  - White blood cell count increased [Unknown]
  - Blood triglycerides increased [Unknown]
  - Blood prolactin increased [Unknown]
  - Diabetes mellitus [Unknown]
